FAERS Safety Report 7358442-0 (Version None)
Quarter: 2011Q1

REPORT INFORMATION
  Report Type: 
  Country: None (occurrence: None)
  Receive Date: 20110317
  Receipt Date: 20110311
  Transmission Date: 20110831
  Serious: Yes (Other)
  Sender: FDA-Public Use
  Company Number: US-SANOFI-AVENTIS-2011SA015562

PATIENT
  Sex: Female

DRUGS (2)
  1. HUMALOG [Suspect]
     Route: 065
  2. LANTUS [Suspect]
     Route: 058
     Dates: end: 20100101

REACTIONS (1)
  - TOE AMPUTATION [None]
